FAERS Safety Report 4606245-X (Version None)
Quarter: 2005Q1

REPORT INFORMATION
  Report Type: 
  Country: None (occurrence: None)
  Receive Date: 20050116
  Receipt Date: 20040524
  Transmission Date: 20050727
  Serious: Yes (Hospitalization, Other)
  Sender: FDA-Public Use
  Company Number: HQWYE097225MAY04

PATIENT
  Age: 42 Year
  Sex: Male

DRUGS (3)
  1. EFFEXOR [Suspect]
     Indication: DEPRESSION
     Dosage: ORAL
     Route: 048
     Dates: start: 20020901, end: 20020929
  2. DURAGESIC-100 [Suspect]
     Indication: PAIN
     Dosage: 50 UG/HR, 1 IN 72 HOURS, TRANSDERMAL; 75 UG/HR, 1 IN 72 HOURS, TRANSDERMAL
     Route: 062
     Dates: start: 20011101, end: 20020915
  3. DURAGESIC-100 [Suspect]
     Indication: PAIN
     Dosage: 50 UG/HR, 1 IN 72 HOURS, TRANSDERMAL; 75 UG/HR, 1 IN 72 HOURS, TRANSDERMAL
     Route: 062
     Dates: start: 20020916, end: 20021002

REACTIONS (1)
  - CONVULSION [None]
